FAERS Safety Report 4666412-6 (Version None)
Quarter: 2005Q2

REPORT INFORMATION
  Report Type: 
  Country: None (occurrence: None)
  Receive Date: 20050518
  Receipt Date: 20050502
  Transmission Date: 20051028
  Serious: Yes (Hospitalization, Other)
  Sender: FDA-Public Use
  Company Number: 18170

PATIENT
  Age: 50 Year
  Sex: Male

DRUGS (1)
  1. FAMOTIDINE [Suspect]
     Indication: CROHN'S DISEASE
     Dates: start: 20050201, end: 20050401

REACTIONS (2)
  - CANDIDIASIS [None]
  - FUNGAEMIA [None]
